FAERS Safety Report 22350079 (Version 2)
Quarter: 2023Q2

REPORT INFORMATION
  Report Type: Report from Study
  Country: US (occurrence: None)
  Receive Date: 20230522
  Receipt Date: 20230523
  Transmission Date: 20230722
  Serious: Yes (Hospitalization)
  Sender: FDA-Public Use
  Company Number: 2023A113143

PATIENT
  Age: 28249 Day
  Sex: Male
  Weight: 108 kg

DRUGS (25)
  1. CALQUENCE [Suspect]
     Active Substance: ACALABRUTINIB
     Indication: Chronic lymphocytic leukaemia
     Route: 048
     Dates: start: 20230420
  2. ASPIRIN [Concomitant]
     Active Substance: ASPIRIN
  3. CARAFATE [Concomitant]
     Active Substance: SUCRALFATE
  4. COQMAX [Concomitant]
  5. DOCUSATE [Concomitant]
     Active Substance: DOCUSATE
  6. ELIQUIS [Concomitant]
     Active Substance: APIXABAN
  7. FARXIGA [Concomitant]
     Active Substance: DAPAGLIFLOZIN PROPANEDIOL
  8. FLONASE [Concomitant]
     Active Substance: FLUTICASONE PROPIONATE
  9. FOLIC ACID [Concomitant]
     Active Substance: FOLIC ACID
  10. HYDRALAZINE [Concomitant]
     Active Substance: HYDRALAZINE HYDROCHLORIDE
  11. ISOSORBIDE [Concomitant]
     Active Substance: ISOSORBIDE
  12. LISINOPRIL [Concomitant]
     Active Substance: LISINOPRIL
  13. METFORMIN [Concomitant]
     Active Substance: METFORMIN HYDROCHLORIDE
  14. NEURONTIN [Concomitant]
     Active Substance: GABAPENTIN
  15. NITROSTAT [Concomitant]
     Active Substance: NITROGLYCERIN
  16. NOVOLIN NOS [Concomitant]
     Active Substance: INSULIN HUMAN
  17. OXYCODONE [Concomitant]
     Active Substance: OXYCODONE
  18. PROTONIX [Concomitant]
     Active Substance: PANTOPRAZOLE SODIUM
  19. PROVENTIL [Concomitant]
     Active Substance: ALBUTEROL
  20. SIMVASTATIN [Concomitant]
     Active Substance: SIMVASTATIN
  21. SINGULAIR [Concomitant]
     Active Substance: MONTELUKAST SODIUM
  22. SYNTHROID [Concomitant]
     Active Substance: LEVOTHYROXINE SODIUM
  23. TOPROL XL [Concomitant]
     Active Substance: METOPROLOL SUCCINATE
  24. VITAMIN B12 [Concomitant]
     Active Substance: CYANOCOBALAMIN
  25. VITAMIN D3 [Concomitant]
     Active Substance: CHOLECALCIFEROL

REACTIONS (1)
  - Cerebrovascular accident [Recovering/Resolving]

NARRATIVE: CASE EVENT DATE: 20230513
